FAERS Safety Report 7494509-4 (Version None)
Quarter: 2011Q2

REPORT INFORMATION
  Report Type: 
  Country: None (occurrence: None)
  Receive Date: 20110520
  Receipt Date: 20110506
  Transmission Date: 20111010
  Serious: Yes (Hospitalization)
  Sender: FDA-Public Use
  Company Number: PHHY2011NL38966

PATIENT
  Sex: Male
  Weight: 108 kg

DRUGS (7)
  1. ALISKIREN [Suspect]
     Indication: HYPERTENSION
     Dosage: 150 MG, QD
     Route: 048
     Dates: start: 20091208, end: 20091222
  2. LANTUS [Concomitant]
     Indication: DIABETES MELLITUS
     Dosage: UNK
  3. SOTALOL HCL [Concomitant]
     Indication: ATRIAL FLUTTER
     Dosage: 40 MG, UNK
  4. NOVORAPID [Concomitant]
     Indication: DIABETES MELLITUS
     Dosage: UNK
  5. AMLODIPINE [Concomitant]
     Indication: HYPERTENSION
     Dosage: 10 MG, UNK
  6. TELMISARTAN [Concomitant]
     Indication: HYPERTENSION
     Dosage: 40 MG, UNK
  7. CARBASALATE CALCIUM [Concomitant]
     Indication: ARTERIOSCLEROSIS
     Dosage: 100 MG, UNK

REACTIONS (1)
  - ISCHAEMIC STROKE [None]
